FAERS Safety Report 11964007 (Version 1)
Quarter: 2016Q1

REPORT INFORMATION
  Report Type: Report from Study
  Country: US (occurrence: US)
  Receive Date: 20160126
  Receipt Date: 20160126
  Transmission Date: 20160526
  Serious: Yes (Hospitalization)
  Sender: FDA-Public Use
  Company Number: US-ABBVIE-15K-163-1380891-00

PATIENT
  Age: 79 Year
  Sex: Female

DRUGS (2)
  1. HUMIRA [Suspect]
     Active Substance: ADALIMUMAB
     Indication: CROHN^S DISEASE
     Route: 058
     Dates: start: 20140618
  2. FENTANYL. [Concomitant]
     Active Substance: FENTANYL
     Indication: NECK PAIN

REACTIONS (4)
  - Crohn^s disease [Not Recovered/Not Resolved]
  - Pneumonia [Unknown]
  - Dehydration [Unknown]
  - Alopecia [Unknown]

NARRATIVE: CASE EVENT DATE: 201504
